FAERS Safety Report 5401322-8 (Version None)
Quarter: 2007Q3

REPORT INFORMATION
  Report Type: 
  Country: None (occurrence: None)
  Receive Date: 20070731
  Receipt Date: 20070606
  Transmission Date: 20080115
  Serious: Yes (Life-Threatening, Other)
  Sender: FDA-Public Use
  Company Number: US-NOVOPROD-264317

PATIENT
  Age: 51 Year
  Sex: Female
  Weight: 89.796 kg

DRUGS (16)
  1. NOVOLOG [Suspect]
     Indication: INSULIN-REQUIRING TYPE II DIABETES MELLITUS
     Dosage: SLIDING SCALE UP TO 16 IU, TID PER CARBOHYDRATES
     Route: 058
     Dates: start: 20070401, end: 20070531
  2. NOVOLOG MIX 70/30 [Suspect]
     Indication: INSULIN-REQUIRING TYPE II DIABETES MELLITUS
     Dosage: SLIDING SCALE UP TO 16 IU, TID PER CARBOHYDRATES
     Route: 058
     Dates: start: 20050101
  3. LANTUS [Concomitant]
     Indication: INSULIN-REQUIRING TYPE II DIABETES MELLITUS
     Dosage: 50 IU, QD AT H.S.
     Route: 058
  4. BYETTA [Concomitant]
     Indication: INSULIN-REQUIRING TYPE II DIABETES MELLITUS
     Dosage: 10 IU, QD IN P.M.
     Route: 058
  5. FLUVOXAMINE MALEATE [Concomitant]
     Indication: OBSESSIVE-COMPULSIVE DISORDER
     Dosage: 100 MG, BID
     Route: 048
  6. DEPAKOTE [Concomitant]
     Indication: OBSESSIVE-COMPULSIVE DISORDER
     Dosage: 250 MG, BID
     Route: 048
  7. ADVAIR DISKUS 100/50 [Concomitant]
     Indication: CHRONIC OBSTRUCTIVE PULMONARY DISEASE
     Dosage: 2 PUFF, BID
     Route: 055
  8. COMBIVENT                          /01033501/ [Concomitant]
     Indication: CHRONIC OBSTRUCTIVE PULMONARY DISEASE
     Dosage: 2 PUFF, BID
     Route: 055
  9. PROVENTIL                          /00139501/ [Concomitant]
     Indication: CHRONIC OBSTRUCTIVE PULMONARY DISEASE
     Dosage: UNK, PRN
     Route: 055
  10. ALBUTEROL [Concomitant]
     Indication: CHRONIC OBSTRUCTIVE PULMONARY DISEASE
     Dosage: 1 UNK, TID VIA NEBULIZER
     Route: 055
  11. ALLOPURINOL [Concomitant]
     Indication: GOUT
     Dosage: 1 CAPS, QD
     Route: 048
  12. COLCHICINE [Concomitant]
     Indication: GOUT
     Dosage: UNK, PRN
     Route: 048
  13. TRAMADOL HCL [Concomitant]
     Indication: PAIN
     Dosage: UNK, PRN
     Route: 048
  14. ZETIA [Concomitant]
     Indication: BLOOD CHOLESTEROL INCREASED
     Dosage: 1 TAB, QD
     Route: 048
  15. NITROGLYCERIN [Concomitant]
     Indication: ARTERIAL SPASM
     Dosage: UNK, PRN LIQUID FORM
     Route: 048
  16. NITRO-DUR [Concomitant]
     Indication: ARTERIAL SPASM
     Dosage: 1 UNK, QD
     Route: 023

REACTIONS (2)
  - DRUG PRESCRIBING ERROR [None]
  - HYPOGLYCAEMIC UNCONSCIOUSNESS [None]
